FAERS Safety Report 25995099 (Version 1)
Quarter: 2025Q4

REPORT INFORMATION
  Report Type: Spontaneous
  Country: CN (occurrence: CN)
  Receive Date: 20251104
  Receipt Date: 20251104
  Transmission Date: 20260118
  Serious: Yes (Hospitalization, Other)
  Sender: EMD SERONO INC
  Company Number: CN-Merck Healthcare KGaA-2025054468

PATIENT
  Age: 32 Year
  Sex: Female
  Weight: 53 kg

DRUGS (4)
  1. LUVERIS [Suspect]
     Active Substance: LUTROPIN ALFA
     Indication: Ovulation induction
     Dates: start: 20250929, end: 20251009
  2. FOLLITROPIN BETA [Suspect]
     Active Substance: FOLLITROPIN BETA
     Indication: Ovulation induction
     Dates: start: 20250929, end: 20251009
  3. CHORIONIC GONADOTROPHIN [Suspect]
     Active Substance: CHORIOGONADOTROPIN ALFA
     Indication: Ovulation induction
     Dates: start: 20251010, end: 20251010
  4. SODIUM CHLORIDE [Concomitant]
     Active Substance: SODIUM CHLORIDE
     Indication: Vehicle solution use
     Dates: start: 20251010, end: 20251010

REACTIONS (1)
  - Ovarian hyperstimulation syndrome [Recovering/Resolving]

NARRATIVE: CASE EVENT DATE: 20251018
